FAERS Safety Report 15746211 (Version 1)
Quarter: 2018Q4

REPORT INFORMATION
  Report Type: Report from Study
  Country: CA (occurrence: CA)
  Receive Date: 20181220
  Receipt Date: 20181220
  Transmission Date: 20190205
  Serious: Yes (Death, Hospitalization)
  Sender: FDA-Public Use
  Company Number: CA-HLSUS-2017-CA-001132

PATIENT
  Age: 57 Year
  Sex: Male

DRUGS (1)
  1. CLOZARIL [Suspect]
     Active Substance: CLOZAPINE
     Route: 048
     Dates: start: 20140821

REACTIONS (3)
  - Pneumonia [Unknown]
  - Hypotension [Recovered/Resolved]
  - Death [Fatal]

NARRATIVE: CASE EVENT DATE: 20171020
